FAERS Safety Report 4763795-3 (Version None)
Quarter: 2005Q3

REPORT INFORMATION
  Report Type: 
  Country: None (occurrence: None)
  Receive Date: 20050901
  Receipt Date: 20050620
  Transmission Date: 20060218
  Serious: No
  Sender: FDA-Public Use
  Company Number: 05P-163-0303644-00

PATIENT
  Age: 54 Year
  Sex: Female
  Weight: 61.6892 kg

DRUGS (9)
  1. DEPAKOTE ER [Suspect]
     Indication: CONVULSION
     Dosage: 500 MG, 2 IN 1 D, PER ORAL
     Route: 048
     Dates: start: 20050101, end: 20050401
  2. DEPAKOTE [Suspect]
     Indication: CONVULSION
     Dosage: 500 MG, 2 IN 1 D, PER ORAL
     Route: 048
     Dates: start: 19960101, end: 20050101
  3. LEVETIRACETAM [Concomitant]
  4. MYCELIN [Concomitant]
  5. ATORVASTATIN CALCIUM [Concomitant]
  6. MULTI-VITAMINS [Concomitant]
  7. ALENDRONATE SODIUM [Concomitant]
  8. RISPERIDONE [Concomitant]
  9. SERTRALINE HYDROCHLORIDE [Concomitant]

REACTIONS (1)
  - HYPERAMMONAEMIA [None]
